FAERS Safety Report 14030738 (Version 2)
Quarter: 2017Q4

REPORT INFORMATION
  Report Type: Spontaneous
  Country: US (occurrence: US)
  Receive Date: 20171002
  Receipt Date: 20171120
  Transmission Date: 20180321
  Serious: Yes (Other)
  Sender: FDA-Public Use
  Company Number: US-ROCHE-2000373

PATIENT
  Age: 45 Year
  Sex: Male
  Weight: 73.55 kg

DRUGS (14)
  1. METHYLPREDNISOLONE SODIUM SUCCINATE. [Concomitant]
     Active Substance: METHYLPREDNISOLONE SODIUM SUCCINATE
     Route: 042
     Dates: start: 20170829, end: 20170829
  2. SODIUM CHLORIDE. [Concomitant]
     Active Substance: SODIUM CHLORIDE
     Dosage: DAY 1 CYCLE 1
     Route: 065
     Dates: start: 20170420
  3. NATALIZUMAB [Concomitant]
     Active Substance: NATALIZUMAB
     Dosage: DAY 1 CYCLE 2
     Route: 065
     Dates: start: 20170518
  4. ACETAMINOPHEN. [Concomitant]
     Active Substance: ACETAMINOPHEN
     Dosage: ORAL ONCE, X1
     Route: 048
     Dates: start: 20170829, end: 20170829
  5. NATALIZUMAB [Concomitant]
     Active Substance: NATALIZUMAB
     Dosage: DAY 1 CYCLE 1
     Route: 065
     Dates: start: 20170420
  6. SODIUM CHLORIDE. [Concomitant]
     Active Substance: SODIUM CHLORIDE
     Dosage: DAY 1 CYCLE 3
     Route: 065
     Dates: start: 20170619
  7. OCREVUS [Suspect]
     Active Substance: OCRELIZUMAB
     Indication: MULTIPLE SCLEROSIS
     Route: 042
     Dates: start: 20170829, end: 20170829
  8. DIPHENHYDRAMINE. [Concomitant]
     Active Substance: DIPHENHYDRAMINE
     Route: 042
     Dates: start: 20170829, end: 20170829
  9. NATALIZUMAB [Concomitant]
     Active Substance: NATALIZUMAB
     Route: 065
     Dates: start: 20170725
  10. FAMOTIDINE. [Concomitant]
     Active Substance: FAMOTIDINE
     Route: 065
  11. NATALIZUMAB [Concomitant]
     Active Substance: NATALIZUMAB
     Dosage: DAY 1 CYCLE 3
     Route: 065
     Dates: start: 20170619
  12. SOLU-CORTEF [Concomitant]
     Active Substance: HYDROCORTISONE SODIUM SUCCINATE
     Route: 065
     Dates: start: 20170829, end: 20170829
  13. SODIUM CHLORIDE. [Concomitant]
     Active Substance: SODIUM CHLORIDE
     Dosage: DAY 1 CYCLE 2
     Route: 065
     Dates: start: 20170518
  14. SODIUM CHLORIDE. [Concomitant]
     Active Substance: SODIUM CHLORIDE
     Route: 065
     Dates: start: 20170725

REACTIONS (4)
  - Enlarged uvula [Recovered/Resolved]
  - Ear pruritus [Unknown]
  - Throat irritation [Recovered/Resolved]
  - Chest discomfort [Unknown]

NARRATIVE: CASE EVENT DATE: 20170829
